FAERS Safety Report 9611847 (Version 3)
Quarter: 2013Q4

REPORT INFORMATION
  Report Type: Report from Study
  Country: AU (occurrence: AU)
  Receive Date: 20131010
  Receipt Date: 20131021
  Transmission Date: 20140711
  Serious: Yes (Death, Hospitalization)
  Sender: FDA-Public Use
  Company Number: PHHY2013AU063858

PATIENT
  Age: 75 Year
  Sex: Male

DRUGS (7)
  1. SANDOSTATIN LAR [Suspect]
     Indication: ACROMEGALY
     Dosage: 20 MG, UNK
     Route: 030
  2. PREDNISOLONE [Concomitant]
     Dosage: 17-5 MG
     Route: 048
  3. TIOTROPIUM [Concomitant]
     Dosage: 18 MG, UNK
  4. SERTRALINE [Concomitant]
     Dosage: 150 MG, UNK
     Route: 048
  5. SALBUTAMOL [Concomitant]
     Dosage: 100 UG, EVERY 4 HOURS
  6. BROMHEXINE [Concomitant]
     Dosage: 5 ML, MDU
     Route: 048
  7. ATORVASTATIN [Concomitant]
     Dosage: 20 MG, UNK
     Route: 048

REACTIONS (4)
  - Infective exacerbation of chronic obstructive airways disease [Fatal]
  - Respiratory tract infection [Fatal]
  - Pneumonia [Fatal]
  - Malaise [Unknown]
